FAERS Safety Report 5166748-9 (Version None)
Quarter: 2006Q4

REPORT INFORMATION
  Report Type: 
  Country: None (occurrence: None)
  Receive Date: 20061207
  Receipt Date: 20051219
  Transmission Date: 20070319
  Serious: Yes (Death, Life-Threatening)
  Sender: FDA-Public Use
  Company Number: FR-ABBOTT-05P-056-0320113-00

PATIENT
  Sex: Male
  Weight: 60 kg

DRUGS (4)
  1. RITONAVIR SOFT GELATIN CAPSULES [Suspect]
     Indication: HIV INFECTION
     Route: 048
     Dates: start: 20051019, end: 20051209
  2. TMC114 [Concomitant]
     Indication: HIV INFECTION
     Route: 048
     Dates: start: 20051019, end: 20051209
  3. TRACLEER [Concomitant]
     Indication: DRUG USE FOR UNKNOWN INDICATION
     Dates: start: 20030518
  4. BOSENTAN [Concomitant]
     Indication: PULMONARY HYPERTENSION

REACTIONS (1)
  - CEREBROVASCULAR ACCIDENT [None]
